FAERS Safety Report 9058065 (Version 1)
Quarter: 2013Q1

REPORT INFORMATION
  Report Type: Spontaneous
  Country: US (occurrence: None)
  Receive Date: 20130204
  Receipt Date: 20130204
  Transmission Date: 20140127
  Serious: No
  Sender: FDA-Public Use
  Company Number: None

PATIENT
  Sex: Female
  Weight: 56.7 kg

DRUGS (1)
  1. FOSAMAX [Suspect]
     Dosage: ONE DOSE PER WEEK

REACTIONS (3)
  - Visual impairment [None]
  - Feeling abnormal [None]
  - Nervous system disorder [None]
